FAERS Safety Report 6832451-X (Version None)
Quarter: 2010Q3

REPORT INFORMATION
  Report Type: 
  Country: None (occurrence: None)
  Receive Date: 20100712
  Receipt Date: 20070308
  Transmission Date: 20110219
  Serious: No
  Sender: FDA-Public Use
  Company Number: US-PFIZER INC-2007020345

PATIENT
  Age: 45 Year
  Sex: Female
  Weight: 64.41 kg

DRUGS (6)
  1. CHANTIX [Suspect]
     Indication: SMOKING CESSATION THERAPY
     Dates: start: 20070209
  2. TAMIFLU [Suspect]
     Indication: NASOPHARYNGITIS
     Dates: start: 20070209
  3. ALL OTHER THERAPEUTIC PRODUCTS [Concomitant]
  4. ALL OTHER THERAPEUTIC PRODUCTS [Concomitant]
     Indication: GASTRIC DISORDER
  5. ZANTAC [Concomitant]
     Indication: GASTRIC DISORDER
  6. PSYLLIUM HYDROPHILIC MUCILLOID [Concomitant]
     Indication: GASTRIC DISORDER

REACTIONS (8)
  - ABDOMINAL PAIN UPPER [None]
  - CONSTIPATION [None]
  - FEELING ABNORMAL [None]
  - FLATULENCE [None]
  - HUNGER [None]
  - INCREASED APPETITE [None]
  - NIGHT SWEATS [None]
  - WEIGHT INCREASED [None]
